FAERS Safety Report 25102237 (Version 1)
Quarter: 2025Q1

REPORT INFORMATION
  Report Type: Spontaneous
  Country: IT (occurrence: IT)
  Receive Date: 20250320
  Receipt Date: 20250320
  Transmission Date: 20250409
  Serious: Yes (Other)
  Sender: ELI LILLY AND COMPANY
  Company Number: IT-ELI_LILLY_AND_COMPANY-IT202503010799

PATIENT
  Age: 64 Year
  Sex: Male

DRUGS (5)
  1. MOUNJARO [Suspect]
     Active Substance: TIRZEPATIDE
     Indication: Obesity
     Route: 065
  2. MOUNJARO [Suspect]
     Active Substance: TIRZEPATIDE
     Indication: Glucose tolerance impaired
  3. ASPIRIN [Concomitant]
     Active Substance: ASPIRIN
     Indication: Product used for unknown indication
  4. BISOPROLOL [Concomitant]
     Active Substance: BISOPROLOL
     Indication: Product used for unknown indication
  5. ROSUVASTATINE/EZETIMIBE [Concomitant]
     Indication: Product used for unknown indication

REACTIONS (2)
  - Dizziness [Unknown]
  - Nausea [Unknown]
